FAERS Safety Report 7033886-5 (Version None)
Quarter: 2010Q4

REPORT INFORMATION
  Report Type: 
  Country: None (occurrence: None)
  Receive Date: 20101007
  Receipt Date: 20100930
  Transmission Date: 20110411
  Serious: Yes (Other)
  Sender: FDA-Public Use
  Company Number: US-AMGEN-KDL441077

PATIENT
  Sex: Male
  Weight: 55.8 kg

DRUGS (3)
  1. PROCRIT [Suspect]
     Indication: ANAEMIA OF MALIGNANT DISEASE
     Route: 058
     Dates: start: 20080101, end: 20100923
  2. OPIUM TINCTURE [Concomitant]
     Route: 048
     Dates: start: 20020101
  3. VITAMINS [Concomitant]
     Route: 048

REACTIONS (2)
  - OEDEMA PERIPHERAL [None]
  - PROSTATE CANCER [None]
